FAERS Safety Report 17058100 (Version 1)
Quarter: 2019Q4

REPORT INFORMATION
  Report Type: Spontaneous
  Country: CA (occurrence: CA)
  Receive Date: 20191121
  Receipt Date: 20191121
  Transmission Date: 20200122
  Serious: Yes (Other)
  Sender: FDA-Public Use
  Company Number: CA-PFIZER INC-2019498283

PATIENT
  Age: 57 Year
  Sex: Female

DRUGS (3)
  1. HYDROXYCHLOROQUINE SULFATE. [Suspect]
     Active Substance: HYDROXYCHLOROQUINE SULFATE
     Indication: RHEUMATOID ARTHRITIS
     Dosage: 200 MG, 1X/DAY
     Route: 048
  2. LEFLUNOMIDE. [Concomitant]
     Active Substance: LEFLUNOMIDE
     Route: 065
  3. SULFASALAZINE. [Suspect]
     Active Substance: SULFASALAZINE
     Indication: RHEUMATOID ARTHRITIS
     Dosage: 1 G, 1X/DAY
     Route: 048

REACTIONS (8)
  - Soft tissue infection [Not Recovered/Not Resolved]
  - Nodule [Not Recovered/Not Resolved]
  - Abscess limb [Not Recovered/Not Resolved]
  - Muscle disorder [Not Recovered/Not Resolved]
  - Musculoskeletal disorder [Not Recovered/Not Resolved]
  - Muscle rupture [Not Recovered/Not Resolved]
  - Synovitis [Not Recovered/Not Resolved]
  - Pain in extremity [Not Recovered/Not Resolved]
